FAERS Safety Report 5674899-5 (Version None)
Quarter: 2008Q1

REPORT INFORMATION
  Report Type: 
  Country: None (occurrence: None)
  Receive Date: 20080320
  Receipt Date: 20080310
  Transmission Date: 20080703
  Serious: Yes (Hospitalization)
  Sender: FDA-Public Use
  Company Number: ES-ROCHE-552374

PATIENT
  Age: 60 Year
  Sex: Male

DRUGS (1)
  1. CELLCEPT [Suspect]
     Route: 065
     Dates: start: 20071201, end: 20080307

REACTIONS (1)
  - MYELITIS TRANSVERSE [None]
